FAERS Safety Report 9637439 (Version 3)
Quarter: 2013Q4

REPORT INFORMATION
  Report Type: Spontaneous
  Country: BR (occurrence: BR)
  Receive Date: 20131022
  Receipt Date: 20131230
  Transmission Date: 20140711
  Serious: Yes (Other)
  Sender: FDA-Public Use
  Company Number: BR-AMGEN-BRASP2013024572

PATIENT
  Age: 51 Year
  Sex: Female
  Weight: 55 kg

DRUGS (2)
  1. ENBREL [Suspect]
     Indication: PSORIASIS
     Dosage: 50 MG, ONCE WEEKLY
     Route: 065
     Dates: start: 20130125, end: 20130402
  2. ENBREL [Suspect]
     Dosage: 50 MG, ONCE A WEEK
     Route: 065
     Dates: start: 2013

REACTIONS (15)
  - Hypotension [Not Recovered/Not Resolved]
  - Bladder disorder [Unknown]
  - Swelling [Unknown]
  - Erythema [Unknown]
  - Pruritus [Unknown]
  - Weight decreased [Not Recovered/Not Resolved]
  - Headache [Unknown]
  - Sluggishness [Unknown]
  - Tooth disorder [Unknown]
  - Urinary tract infection [Unknown]
  - Pain in extremity [Recovering/Resolving]
  - Bone pain [Recovering/Resolving]
  - Asthenia [Recovering/Resolving]
  - Decreased appetite [Recovering/Resolving]
  - Anaemia [Recovering/Resolving]
